FAERS Safety Report 17693317 (Version 3)
Quarter: 2020Q2

REPORT INFORMATION
  Report Type: Report from Study
  Country: IT (occurrence: IT)
  Receive Date: 20200422
  Receipt Date: 20200513
  Transmission Date: 20200714
  Serious: Yes (Life-Threatening)
  Sender: FDA-Public Use
  Company Number: IT-ROCHE-2586916

PATIENT
  Sex: Male

DRUGS (7)
  1. DIAZEPAM. [Concomitant]
     Active Substance: DIAZEPAM
     Dosage: 10 GTT/DIE
     Route: 065
     Dates: start: 20200403
  2. CLEXANE [Concomitant]
     Active Substance: ENOXAPARIN SODIUM
     Dosage: 4000
     Route: 065
     Dates: start: 20200403
  3. PLAQUENIL [Concomitant]
     Active Substance: HYDROXYCHLOROQUINE SULFATE
     Dosage: 200
     Route: 065
     Dates: start: 20200403
  4. TOCILIZUMAB. [Suspect]
     Active Substance: TOCILIZUMAB
     Indication: COVID-19 PNEUMONIA
     Dosage: TOCILIZUMAB 8 MG/KG (UP TO A MAXIMUM OF 800MG PER DOSE), WITH AN INTERVAL OF 12 HOURS.?LAST ADMINIST
     Route: 042
  5. AZITROMICINA [Concomitant]
     Active Substance: AZITHROMYCIN DIHYDRATE
     Dosage: 500/DIE
     Route: 065
     Dates: start: 20200403
  6. TAZOCIN [Concomitant]
     Active Substance: PIPERACILLIN SODIUM\TAZOBACTAM SODIUM
     Dosage: 4.5
     Route: 065
     Dates: start: 20200403
  7. MORFINA [MORPHINE] [Concomitant]
     Route: 058
     Dates: start: 20200403

REACTIONS (1)
  - Embolism arterial [Unknown]

NARRATIVE: CASE EVENT DATE: 20200402
